FAERS Safety Report 17665081 (Version 2)
Quarter: 2020Q2

REPORT INFORMATION
  Report Type: Spontaneous
  Country: FR (occurrence: FR)
  Receive Date: 20200414
  Receipt Date: 20200603
  Transmission Date: 20200713
  Serious: Yes (Other)
  Sender: FDA-Public Use
  Company Number: FR-ELI_LILLY_AND_COMPANY-FR202004001482

PATIENT
  Age: 62 Year
  Sex: Male

DRUGS (8)
  1. ZYPADHERA [Suspect]
     Active Substance: OLANZAPINE PAMOATE
     Dosage: 1.7 ML, SINGLE
     Route: 030
     Dates: start: 20200327, end: 20200327
  2. ZYPADHERA [Suspect]
     Active Substance: OLANZAPINE PAMOATE
     Dosage: 1.7 ML, SINGLE
     Route: 030
     Dates: start: 20200327, end: 20200327
  3. ZYPADHERA [Suspect]
     Active Substance: OLANZAPINE PAMOATE
     Indication: SCHIZOPHRENIA
     Dosage: 2.7 ML, SINGLE
     Route: 030
     Dates: start: 20200327, end: 20200327
  4. ZYPADHERA [Suspect]
     Active Substance: OLANZAPINE PAMOATE
     Indication: SCHIZOPHRENIA
     Dosage: 2.7 ML, SINGLE
     Route: 030
     Dates: start: 20200327, end: 20200327
  5. ZYPADHERA [Suspect]
     Active Substance: OLANZAPINE PAMOATE
     Indication: SCHIZOPHRENIA
     Dosage: 2.7 ML, SINGLE
     Route: 030
     Dates: start: 20200327, end: 20200327
  6. ZYPADHERA [Suspect]
     Active Substance: OLANZAPINE PAMOATE
     Indication: SCHIZOPHRENIA
     Dosage: 2.7 ML, SINGLE
     Route: 030
     Dates: start: 20200327, end: 20200327
  7. ZYPADHERA [Suspect]
     Active Substance: OLANZAPINE PAMOATE
     Dosage: 1.7 ML, SINGLE
     Route: 030
     Dates: start: 20200327, end: 20200327
  8. ZYPADHERA [Suspect]
     Active Substance: OLANZAPINE PAMOATE
     Dosage: 1.7 ML, SINGLE
     Route: 030
     Dates: start: 20200327, end: 20200327

REACTIONS (1)
  - Incorrect dose administered by device [Recovered/Resolved]

NARRATIVE: CASE EVENT DATE: 20200327
